FAERS Safety Report 10146199 (Version 3)
Quarter: 2014Q4

REPORT INFORMATION
  Report Type: Report from Study
  Country: AU (occurrence: None)
  Receive Date: 20140429
  Receipt Date: 20141204
  Transmission Date: 20150528
  Serious: Yes (Other)
  Sender: FDA-Public Use
  Company Number: 2014-19414

PATIENT
  Age: 75 Year
  Sex: Female

DRUGS (1)
  1. EYLEA [Suspect]
     Active Substance: AFLIBERCEPT
     Indication: AGE-RELATED MACULAR DEGENERATION
     Dosage: 2 MG, LEFT EYE INJECTION EVERY 6 WEEKS
     Route: 031
     Dates: start: 201310

REACTIONS (6)
  - Lacrimation increased [None]
  - Blindness [None]
  - Eye pain [None]
  - Visual impairment [None]
  - Inappropriate schedule of drug administration [None]
  - Visual acuity reduced [None]

NARRATIVE: CASE EVENT DATE: 201402
